FAERS Safety Report 5220233-4 (Version None)
Quarter: 2007Q1

REPORT INFORMATION
  Report Type: 
  Country: None (occurrence: None)
  Receive Date: 20061208
  Receipt Date: 20060815
  Transmission Date: 20070707
  Serious: Yes (Other)
  Sender: FDA-Public Use
  Company Number: 2006098146

PATIENT
  Sex: Male
  Weight: 81.6475 kg

DRUGS (1)
  1. VIAGRA [Suspect]
     Indication: ERECTILE DYSFUNCTION
     Dosage: 100 MG (100 MG, 1 AS NECESSARY)
     Dates: start: 20020101

REACTIONS (3)
  - DRUG EFFECT INCREASED [None]
  - ERECTION INCREASED [None]
  - HYPERSOMNIA [None]
